FAERS Safety Report 24438580 (Version 1)
Quarter: 2024Q4

REPORT INFORMATION
  Report Type: Spontaneous
  Country: CA (occurrence: CA)
  Receive Date: 20241015
  Receipt Date: 20241015
  Transmission Date: 20250115
  Serious: Yes (Life-Threatening, Hospitalization, Disabling, Other)
  Sender: BRISTOL-MYERS SQUIBB COMPANY
  Company Number: CA-BRISTOL-MYERS SQUIBB COMPANY-2024-155108

PATIENT
  Age: 44 Year
  Sex: Female
  Weight: 78 kg

DRUGS (415)
  1. ORENCIA [Suspect]
     Active Substance: ABATACEPT
     Indication: Rheumatoid arthritis
     Route: 058
  2. ORENCIA [Suspect]
     Active Substance: ABATACEPT
  3. ORENCIA [Suspect]
     Active Substance: ABATACEPT
     Route: 048
  4. ORENCIA [Suspect]
     Active Substance: ABATACEPT
     Route: 042
  5. ORENCIA [Suspect]
     Active Substance: ABATACEPT
     Route: 042
  6. ORENCIA [Suspect]
     Active Substance: ABATACEPT
     Route: 042
  7. ORENCIA [Suspect]
     Active Substance: ABATACEPT
  8. ORENCIA [Suspect]
     Active Substance: ABATACEPT
     Route: 042
  9. ORENCIA [Suspect]
     Active Substance: ABATACEPT
     Route: 058
  10. ORENCIA [Suspect]
     Active Substance: ABATACEPT
     Route: 058
  11. ORENCIA [Suspect]
     Active Substance: ABATACEPT
     Route: 058
  12. ORENCIA [Suspect]
     Active Substance: ABATACEPT
     Route: 058
  13. ORENCIA [Suspect]
     Active Substance: ABATACEPT
  14. ORENCIA [Suspect]
     Active Substance: ABATACEPT
  15. ORENCIA [Suspect]
     Active Substance: ABATACEPT
  16. ORENCIA [Suspect]
     Active Substance: ABATACEPT
     Route: 042
  17. ORENCIA [Suspect]
     Active Substance: ABATACEPT
     Route: 058
  18. ACETAMINOPHEN [Concomitant]
     Active Substance: ACETAMINOPHEN
     Indication: Rheumatoid arthritis
  19. ACETAMINOPHEN [Concomitant]
     Active Substance: ACETAMINOPHEN
     Indication: Pyrexia
  20. ACETAMINOPHEN [Concomitant]
     Active Substance: ACETAMINOPHEN
     Indication: Pain
  21. OXYCODONE AND ACETAMINOPHEN [Concomitant]
     Active Substance: ACETAMINOPHEN\OXYCODONE HYDROCHLORIDE
     Indication: Product used for unknown indication
  22. ACTEMRA [Concomitant]
     Active Substance: TOCILIZUMAB
     Indication: Rheumatoid arthritis
  23. ACTEMRA [Concomitant]
     Active Substance: TOCILIZUMAB
  24. ACTEMRA [Concomitant]
     Active Substance: TOCILIZUMAB
     Route: 016
  25. ACTEMRA [Concomitant]
     Active Substance: TOCILIZUMAB
     Route: 058
  26. ACTEMRA [Concomitant]
     Active Substance: TOCILIZUMAB
     Route: 016
  27. ACTEMRA [Concomitant]
     Active Substance: TOCILIZUMAB
     Route: 016
  28. ACTEMRA [Concomitant]
     Active Substance: TOCILIZUMAB
     Route: 048
  29. ACTEMRA [Concomitant]
     Active Substance: TOCILIZUMAB
     Route: 061
  30. ACTEMRA [Concomitant]
     Active Substance: TOCILIZUMAB
     Route: 058
  31. ACTEMRA [Concomitant]
     Active Substance: TOCILIZUMAB
     Route: 042
  32. ACTEMRA [Concomitant]
     Active Substance: TOCILIZUMAB
     Route: 042
  33. ACTEMRA [Concomitant]
     Active Substance: TOCILIZUMAB
  34. ACTEMRA [Concomitant]
     Active Substance: TOCILIZUMAB
     Route: 042
  35. ACTEMRA [Concomitant]
     Active Substance: TOCILIZUMAB
     Route: 042
  36. ACTEMRA [Concomitant]
     Active Substance: TOCILIZUMAB
     Route: 058
  37. ACTEMRA [Concomitant]
     Active Substance: TOCILIZUMAB
     Route: 042
  38. ACTEMRA [Concomitant]
     Active Substance: TOCILIZUMAB
     Route: 058
  39. ACTEMRA [Concomitant]
     Active Substance: TOCILIZUMAB
  40. ACTEMRA [Concomitant]
     Active Substance: TOCILIZUMAB
     Route: 042
  41. ACTEMRA [Concomitant]
     Active Substance: TOCILIZUMAB
     Route: 042
  42. ACTEMRA [Concomitant]
     Active Substance: TOCILIZUMAB
  43. ACTEMRA [Concomitant]
     Active Substance: TOCILIZUMAB
     Route: 042
  44. ACTEMRA [Concomitant]
     Active Substance: TOCILIZUMAB
  45. ACTEMRA [Concomitant]
     Active Substance: TOCILIZUMAB
     Route: 042
  46. ACTEMRA [Concomitant]
     Active Substance: TOCILIZUMAB
     Route: 042
  47. ACTEMRA [Concomitant]
     Active Substance: TOCILIZUMAB
     Route: 042
  48. ACTEMRA [Concomitant]
     Active Substance: TOCILIZUMAB
     Route: 058
  49. ACTEMRA [Concomitant]
     Active Substance: TOCILIZUMAB
  50. ACTEMRA [Concomitant]
     Active Substance: TOCILIZUMAB
     Route: 042
  51. ACTEMRA [Concomitant]
     Active Substance: TOCILIZUMAB
     Route: 042
  52. ACTEMRA [Concomitant]
     Active Substance: TOCILIZUMAB
     Route: 048
  53. ACTEMRA [Concomitant]
     Active Substance: TOCILIZUMAB
     Route: 042
  54. ADALIMUMAB [Concomitant]
     Active Substance: ADALIMUMAB
     Indication: Rheumatoid arthritis
     Route: 058
  55. ADALIMUMAB [Concomitant]
     Active Substance: ADALIMUMAB
     Indication: Psoriatic arthropathy
     Route: 058
  56. ADALIMUMAB [Concomitant]
     Active Substance: ADALIMUMAB
     Route: 042
  57. ADALIMUMAB [Concomitant]
     Active Substance: ADALIMUMAB
     Route: 048
  58. ADALIMUMAB [Concomitant]
     Active Substance: ADALIMUMAB
     Route: 058
  59. ALENDRONATE SODIUM [Concomitant]
     Active Substance: ALENDRONATE SODIUM
     Indication: Rheumatoid arthritis
     Route: 048
  60. ALENDRONATE SODIUM [Concomitant]
     Active Substance: ALENDRONATE SODIUM
  61. ALENDRONATE SODIUM [Concomitant]
     Active Substance: ALENDRONATE SODIUM
     Route: 048
  62. ALENDRONIC ACID [Concomitant]
     Active Substance: ALENDRONIC ACID
     Indication: Rheumatoid arthritis
  63. ALENDRONIC ACID [Concomitant]
     Active Substance: ALENDRONIC ACID
     Route: 016
  64. ALENDRONIC ACID [Concomitant]
     Active Substance: ALENDRONIC ACID
  65. ALENDRONIC ACID [Concomitant]
     Active Substance: ALENDRONIC ACID
     Route: 048
  66. ALENDRONIC ACID [Concomitant]
     Active Substance: ALENDRONIC ACID
  67. PREDNISONE [Concomitant]
     Active Substance: PREDNISONE
     Indication: Systemic lupus erythematosus
     Route: 048
  68. PREDNISONE [Concomitant]
     Active Substance: PREDNISONE
     Indication: Synovitis
  69. PREDNISONE [Concomitant]
     Active Substance: PREDNISONE
     Indication: Rheumatoid arthritis
  70. PREDNISONE [Concomitant]
     Active Substance: PREDNISONE
     Indication: Psoriatic arthropathy
  71. PREDNISONE [Concomitant]
     Active Substance: PREDNISONE
     Indication: Pemphigus
     Route: 048
  72. PREDNISONE [Concomitant]
     Active Substance: PREDNISONE
     Indication: Inflammation
     Route: 048
  73. PREDNISONE [Concomitant]
     Active Substance: PREDNISONE
     Indication: Bursitis
     Route: 048
  74. PREDNISONE [Concomitant]
     Active Substance: PREDNISONE
  75. PREDNISONE [Concomitant]
     Active Substance: PREDNISONE
  76. APREMILAST [Concomitant]
     Active Substance: APREMILAST
     Indication: Product used for unknown indication
     Route: 048
  77. APREMILAST [Concomitant]
     Active Substance: APREMILAST
  78. APREPITANT [Concomitant]
     Active Substance: APREPITANT
     Indication: Product used for unknown indication
     Route: 042
  79. APREPITANT [Concomitant]
     Active Substance: APREPITANT
     Route: 042
  80. APREPITANT [Concomitant]
     Active Substance: APREPITANT
  81. APREPITANT [Concomitant]
     Active Substance: APREPITANT
     Route: 048
  82. ASACOL [Concomitant]
     Active Substance: MESALAMINE
     Indication: Product used for unknown indication
  83. CALCIUM CARBONATE [Concomitant]
     Active Substance: CALCIUM CARBONATE
     Indication: Product used for unknown indication
  84. CALCIUM GLUBIONATE [Concomitant]
     Active Substance: CALCIUM GLUBIONATE
     Indication: Product used for unknown indication
     Route: 016
  85. CALCIUM GLUBIONATE [Concomitant]
     Active Substance: CALCIUM GLUBIONATE
  86. CALCIUM GLUBIONATE [Concomitant]
     Active Substance: CALCIUM GLUBIONATE
  87. CALCIUM\CHOLECALCIFEROL [Concomitant]
     Active Substance: CALCIUM\CHOLECALCIFEROL
     Indication: Product used for unknown indication
  88. CELEBREX [Concomitant]
     Active Substance: CELECOXIB
     Indication: Rheumatoid arthritis
     Route: 048
  89. CELEBREX [Concomitant]
     Active Substance: CELECOXIB
     Indication: Arthritis
     Route: 048
  90. CELEBREX [Concomitant]
     Active Substance: CELECOXIB
  91. CELECOXIB [Concomitant]
     Active Substance: CELECOXIB
     Indication: Product used for unknown indication
  92. CELECOXIB [Concomitant]
     Active Substance: CELECOXIB
  93. CERTOLIZUMAB PEGOL [Concomitant]
     Active Substance: CERTOLIZUMAB PEGOL
     Indication: Product used for unknown indication
  94. CETIRIZINE HYDROCHLORIDE AND PSEUDOEPHEDRINE HYDROCHLORIDE [Concomitant]
     Active Substance: CETIRIZINE HYDROCHLORIDE\PSEUDOEPHEDRINE HYDROCHLORIDE
     Indication: Rheumatoid arthritis
  95. CETIRIZINE HYDROCHLORIDE AND PSEUDOEPHEDRINE HYDROCHLORIDE [Concomitant]
     Active Substance: CETIRIZINE HYDROCHLORIDE\PSEUDOEPHEDRINE HYDROCHLORIDE
     Route: 016
  96. CETIRIZINE HYDROCHLORIDE AND PSEUDOEPHEDRINE HYDROCHLORIDE [Concomitant]
     Active Substance: CETIRIZINE HYDROCHLORIDE\PSEUDOEPHEDRINE HYDROCHLORIDE
  97. CHLORAPREP [Concomitant]
     Active Substance: CHLORHEXIDINE GLUCONATE\ISOPROPYL ALCOHOL
     Indication: Product used for unknown indication
     Route: 048
  98. CHLORAPREP [Concomitant]
     Active Substance: CHLORHEXIDINE GLUCONATE\ISOPROPYL ALCOHOL
     Route: 061
  99. CHLORAPREP [Concomitant]
     Active Substance: CHLORHEXIDINE GLUCONATE\ISOPROPYL ALCOHOL
  100. CHLORAPREP [Concomitant]
     Active Substance: CHLORHEXIDINE GLUCONATE\ISOPROPYL ALCOHOL
     Route: 061
  101. CHLORHEXIDINE GLUCONATE [Concomitant]
     Active Substance: CHLORHEXIDINE GLUCONATE
     Indication: Product used for unknown indication
  102. CHLORHEXIDINE GLUCONATE [Concomitant]
     Active Substance: CHLORHEXIDINE GLUCONATE
     Route: 002
  103. CHLORHEXIDINE GLUCONATE [Concomitant]
     Active Substance: CHLORHEXIDINE GLUCONATE
     Route: 002
  104. CHLORHEXIDINE GLUCONATE [Concomitant]
     Active Substance: CHLORHEXIDINE GLUCONATE
     Route: 061
  105. CHLORHEXIDINE GLUCONATE [Concomitant]
     Active Substance: CHLORHEXIDINE GLUCONATE
  106. CHLORHEXIDINE GLUCONATE [Concomitant]
     Active Substance: CHLORHEXIDINE GLUCONATE
     Route: 061
  107. CHLORHEXIDINE GLUCONATE [Concomitant]
     Active Substance: CHLORHEXIDINE GLUCONATE
  108. CHLORHEXIDINE GLUCONATE [Concomitant]
     Active Substance: CHLORHEXIDINE GLUCONATE
     Route: 048
  109. CHLORHEXIDINE GLUCONATE [Concomitant]
     Active Substance: CHLORHEXIDINE GLUCONATE
  110. CIMZIA [Concomitant]
     Active Substance: CERTOLIZUMAB PEGOL
     Indication: Rheumatoid arthritis
  111. CIMZIA [Concomitant]
     Active Substance: CERTOLIZUMAB PEGOL
     Indication: Psoriatic arthropathy
  112. CIMZIA [Concomitant]
     Active Substance: CERTOLIZUMAB PEGOL
     Indication: Psoriasis
  113. CIMZIA [Concomitant]
     Active Substance: CERTOLIZUMAB PEGOL
  114. CIMZIA [Concomitant]
     Active Substance: CERTOLIZUMAB PEGOL
  115. CIMZIA [Concomitant]
     Active Substance: CERTOLIZUMAB PEGOL
     Route: 058
  116. CIMZIA [Concomitant]
     Active Substance: CERTOLIZUMAB PEGOL
     Route: 042
  117. CIMZIA [Concomitant]
     Active Substance: CERTOLIZUMAB PEGOL
  118. CIMZIA [Concomitant]
     Active Substance: CERTOLIZUMAB PEGOL
     Route: 058
  119. CIMZIA [Concomitant]
     Active Substance: CERTOLIZUMAB PEGOL
     Route: 058
  120. CIMZIA [Concomitant]
     Active Substance: CERTOLIZUMAB PEGOL
     Route: 005
  121. CIMZIA [Concomitant]
     Active Substance: CERTOLIZUMAB PEGOL
     Route: 058
  122. CIMZIA [Concomitant]
     Active Substance: CERTOLIZUMAB PEGOL
     Route: 058
  123. CIMZIA [Concomitant]
     Active Substance: CERTOLIZUMAB PEGOL
     Route: 058
  124. CORTISONE ACETATE [Concomitant]
     Active Substance: CORTISONE ACETATE
     Indication: Rheumatoid arthritis
     Route: 061
  125. CORTISONE ACETATE [Concomitant]
     Active Substance: CORTISONE ACETATE
     Route: 061
  126. CORTISONE ACETATE [Concomitant]
     Active Substance: CORTISONE ACETATE
     Route: 048
  127. CORTISONE ACETATE [Concomitant]
     Active Substance: CORTISONE ACETATE
     Route: 048
  128. CORTISONE ACETATE [Concomitant]
     Active Substance: CORTISONE ACETATE
  129. CORTISONE ACETATE [Concomitant]
     Active Substance: CORTISONE ACETATE
  130. COSENTYX [Concomitant]
     Active Substance: SECUKINUMAB
     Indication: Rheumatoid arthritis
     Route: 042
  131. COSENTYX [Concomitant]
     Active Substance: SECUKINUMAB
     Route: 005
  132. COSENTYX [Concomitant]
     Active Substance: SECUKINUMAB
     Route: 005
  133. COSENTYX [Concomitant]
     Active Substance: SECUKINUMAB
     Route: 042
  134. DESOXIMETASONE [Concomitant]
     Active Substance: DESOXIMETASONE
     Indication: Rheumatoid arthritis
     Route: 061
  135. DESOXIMETASONE [Concomitant]
     Active Substance: DESOXIMETASONE
  136. DESOXIMETASONE [Concomitant]
     Active Substance: DESOXIMETASONE
     Route: 003
  137. DESOXIMETASONE [Concomitant]
     Active Substance: DESOXIMETASONE
     Route: 048
  138. DESOXIMETASONE [Concomitant]
     Active Substance: DESOXIMETASONE
     Route: 048
  139. DESOXIMETASONE [Concomitant]
     Active Substance: DESOXIMETASONE
     Route: 003
  140. DESOXIMETASONE [Concomitant]
     Active Substance: DESOXIMETASONE
     Route: 042
  141. DESOXIMETASONE [Concomitant]
     Active Substance: DESOXIMETASONE
     Route: 048
  142. DESOXIMETASONE [Concomitant]
     Active Substance: DESOXIMETASONE
     Route: 048
  143. DESOXIMETASONE [Concomitant]
     Active Substance: DESOXIMETASONE
     Route: 058
  144. DESOXIMETASONE [Concomitant]
     Active Substance: DESOXIMETASONE
  145. DESOXIMETASONE [Concomitant]
     Active Substance: DESOXIMETASONE
     Route: 003
  146. DESOXIMETASONE [Concomitant]
     Active Substance: DESOXIMETASONE
     Route: 058
  147. DESOXIMETASONE [Concomitant]
     Active Substance: DESOXIMETASONE
     Route: 061
  148. DESOXIMETASONE [Concomitant]
     Active Substance: DESOXIMETASONE
     Route: 048
  149. DESOXIMETASONE [Concomitant]
     Active Substance: DESOXIMETASONE
     Route: 058
  150. DESOXIMETASONE [Concomitant]
     Active Substance: DESOXIMETASONE
     Route: 003
  151. DESOXIMETASONE [Concomitant]
     Active Substance: DESOXIMETASONE
  152. DESOXIMETASONE [Concomitant]
     Active Substance: DESOXIMETASONE
     Route: 003
  153. DESOXIMETASONE [Concomitant]
     Active Substance: DESOXIMETASONE
  154. DESOXIMETASONE [Concomitant]
     Active Substance: DESOXIMETASONE
     Route: 048
  155. DESOXIMETASONE [Concomitant]
     Active Substance: DESOXIMETASONE
     Route: 061
  156. DICLOFENAC [Concomitant]
     Active Substance: DICLOFENAC
     Indication: Product used for unknown indication
  157. DICLOFENAC [Concomitant]
     Active Substance: DICLOFENAC
     Route: 047
  158. DICLOFENAC DIETHYLAMINE [Concomitant]
     Active Substance: DICLOFENAC DIETHYLAMINE
     Indication: Product used for unknown indication
  159. DICLOFENAC POTASSIUM [Concomitant]
     Active Substance: DICLOFENAC POTASSIUM
     Indication: Product used for unknown indication
     Route: 058
  160. DICLOFENAC POTASSIUM [Concomitant]
     Active Substance: DICLOFENAC POTASSIUM
     Route: 048
  161. DICLOFENAC SODIUM [Concomitant]
     Active Substance: DICLOFENAC SODIUM
     Indication: Product used for unknown indication
     Route: 048
  162. DICLOFENAC SODIUM [Concomitant]
     Active Substance: DICLOFENAC SODIUM
     Route: 047
  163. DICLOFENAC SODIUM [Concomitant]
     Active Substance: DICLOFENAC SODIUM
     Route: 058
  164. DICLOFENAC SODIUM [Concomitant]
     Active Substance: DICLOFENAC SODIUM
  165. DICLOFENAC SODIUM [Concomitant]
     Active Substance: DICLOFENAC SODIUM
  166. DICLOFENAC SODIUM [Concomitant]
     Active Substance: DICLOFENAC SODIUM
  167. DICLOFENAC SODIUM [Concomitant]
     Active Substance: DICLOFENAC SODIUM
     Route: 047
  168. DILTIAZEM [Concomitant]
     Active Substance: DILTIAZEM
     Indication: Product used for unknown indication
  169. DILTIAZEM HYDROCHLORIDE [Concomitant]
     Active Substance: DILTIAZEM HYDROCHLORIDE
     Indication: Product used for unknown indication
     Route: 042
  170. DILTIAZEM HYDROCHLORIDE [Concomitant]
     Active Substance: DILTIAZEM HYDROCHLORIDE
  171. DOXYCYCLINE [Concomitant]
     Active Substance: DOXYCYCLINE
     Indication: Product used for unknown indication
  172. ENBREL [Concomitant]
     Active Substance: ETANERCEPT
     Indication: Rheumatoid arthritis
  173. ENBREL [Concomitant]
     Active Substance: ETANERCEPT
     Indication: Psoriatic arthropathy
  174. ENBREL [Concomitant]
     Active Substance: ETANERCEPT
     Route: 058
  175. ENBREL [Concomitant]
     Active Substance: ETANERCEPT
     Route: 058
  176. ENBREL [Concomitant]
     Active Substance: ETANERCEPT
  177. ENBREL [Concomitant]
     Active Substance: ETANERCEPT
     Route: 058
  178. ENBREL [Concomitant]
     Active Substance: ETANERCEPT
     Route: 058
  179. ENBREL [Concomitant]
     Active Substance: ETANERCEPT
     Route: 058
  180. ENBREL [Concomitant]
     Active Substance: ETANERCEPT
     Route: 058
  181. ENTYVIO [Concomitant]
     Active Substance: VEDOLIZUMAB
     Indication: Product used for unknown indication
  182. ERELZI [Concomitant]
     Active Substance: ETANERCEPT-SZZS
     Indication: Rheumatoid arthritis
  183. ERELZI [Concomitant]
     Active Substance: ETANERCEPT-SZZS
  184. ERELZI [Concomitant]
     Active Substance: ETANERCEPT-SZZS
  185. ERELZI [Concomitant]
     Active Substance: ETANERCEPT-SZZS
     Route: 058
  186. ERELZI [Concomitant]
     Active Substance: ETANERCEPT-SZZS
     Route: 058
  187. FLUMETHASONE PIVALATE [Concomitant]
     Active Substance: FLUMETHASONE PIVALATE
     Indication: Rheumatoid arthritis
     Route: 003
  188. FLUMETHASONE PIVALATE [Concomitant]
     Active Substance: FLUMETHASONE PIVALATE
  189. FLUMETHASONE PIVALATE [Concomitant]
     Active Substance: FLUMETHASONE PIVALATE
  190. FOLIC ACID [Concomitant]
     Active Substance: FOLIC ACID
     Indication: Rheumatoid arthritis
  191. FOLIC ACID [Concomitant]
     Active Substance: FOLIC ACID
  192. FOLIC ACID [Concomitant]
     Active Substance: FOLIC ACID
  193. FOLIC ACID [Concomitant]
     Active Substance: FOLIC ACID
     Route: 048
  194. FOLIC ACID [Concomitant]
     Active Substance: FOLIC ACID
  195. FOLIC ACID [Concomitant]
     Active Substance: FOLIC ACID
     Route: 058
  196. FOLIC ACID [Concomitant]
     Active Substance: FOLIC ACID
  197. FOLIC ACID [Concomitant]
     Active Substance: FOLIC ACID
  198. FOLIC ACID [Concomitant]
     Active Substance: FOLIC ACID
     Route: 048
  199. FOLIC ACID [Concomitant]
     Active Substance: FOLIC ACID
     Route: 048
  200. FOLIC ACID [Concomitant]
     Active Substance: FOLIC ACID
     Route: 048
  201. FOLIC ACID [Concomitant]
     Active Substance: FOLIC ACID
  202. FOLIC ACID [Concomitant]
     Active Substance: FOLIC ACID
  203. FOLIC ACID [Concomitant]
     Active Substance: FOLIC ACID
  204. FOLIC ACID [Concomitant]
     Active Substance: FOLIC ACID
  205. FOLIC ACID [Concomitant]
     Active Substance: FOLIC ACID
  206. FOLIC ACID [Concomitant]
     Active Substance: FOLIC ACID
  207. FOLIC ACID [Concomitant]
     Active Substance: FOLIC ACID
  208. FOLIC ACID [Concomitant]
     Active Substance: FOLIC ACID
  209. FOLIC ACID [Concomitant]
     Active Substance: FOLIC ACID
  210. FOLIC ACID [Concomitant]
     Active Substance: FOLIC ACID
  211. FOLIC ACID [Concomitant]
     Active Substance: FOLIC ACID
     Route: 048
  212. FOLIC ACID [Concomitant]
     Active Substance: FOLIC ACID
  213. FOSAMAX [Concomitant]
     Active Substance: ALENDRONATE SODIUM
     Indication: Rheumatoid arthritis
  214. FOSAMAX [Concomitant]
     Active Substance: ALENDRONATE SODIUM
     Route: 048
  215. FOSAMAX [Concomitant]
     Active Substance: ALENDRONATE SODIUM
     Route: 016
  216. FOSAMAX [Concomitant]
     Active Substance: ALENDRONATE SODIUM
     Route: 058
  217. FOSAMAX [Concomitant]
     Active Substance: ALENDRONATE SODIUM
     Route: 048
  218. FOSAMAX [Concomitant]
     Active Substance: ALENDRONATE SODIUM
     Route: 048
  219. FOSAMAX [Concomitant]
     Active Substance: ALENDRONATE SODIUM
     Route: 005
  220. FOSAMAX [Concomitant]
     Active Substance: ALENDRONATE SODIUM
     Route: 005
  221. FOSAMAX [Concomitant]
     Active Substance: ALENDRONATE SODIUM
  222. FOSAMAX [Concomitant]
     Active Substance: ALENDRONATE SODIUM
     Route: 048
  223. FOSAMAX [Concomitant]
     Active Substance: ALENDRONATE SODIUM
     Route: 048
  224. FOSAMAX [Concomitant]
     Active Substance: ALENDRONATE SODIUM
     Route: 048
  225. FOSAMAX [Concomitant]
     Active Substance: ALENDRONATE SODIUM
  226. GOLIMUMAB [Concomitant]
     Active Substance: GOLIMUMAB
     Indication: Rheumatoid arthritis
  227. GOLIMUMAB [Concomitant]
     Active Substance: GOLIMUMAB
     Route: 058
  228. HUMIRA [Concomitant]
     Active Substance: ADALIMUMAB
     Indication: Rheumatoid arthritis
     Route: 058
  229. HUMIRA [Concomitant]
     Active Substance: ADALIMUMAB
     Indication: Psoriatic arthropathy
     Route: 058
  230. HUMIRA [Concomitant]
     Active Substance: ADALIMUMAB
  231. HUMIRA [Concomitant]
     Active Substance: ADALIMUMAB
     Route: 058
  232. HUMIRA [Concomitant]
     Active Substance: ADALIMUMAB
     Route: 058
  233. HYDROCORTISONE SODIUM SUCCINATE [Concomitant]
     Active Substance: HYDROCORTISONE SODIUM SUCCINATE
     Indication: Rheumatoid arthritis
  234. HYDROCORTISONE SODIUM SUCCINATE [Concomitant]
     Active Substance: HYDROCORTISONE SODIUM SUCCINATE
     Route: 003
  235. HYDROCORTISONE SODIUM SUCCINATE [Concomitant]
     Active Substance: HYDROCORTISONE SODIUM SUCCINATE
     Route: 058
  236. HYDROCORTISONE SODIUM SUCCINATE [Concomitant]
     Active Substance: HYDROCORTISONE SODIUM SUCCINATE
  237. HYDROCORTISONE SODIUM SUCCINATE [Concomitant]
     Active Substance: HYDROCORTISONE SODIUM SUCCINATE
     Route: 058
  238. HYDROCORTISONE SODIUM SUCCINATE [Concomitant]
     Active Substance: HYDROCORTISONE SODIUM SUCCINATE
  239. HYDROCORTISONE SODIUM SUCCINATE [Concomitant]
     Active Substance: HYDROCORTISONE SODIUM SUCCINATE
     Route: 061
  240. HYDROCORTISONE SODIUM SUCCINATE [Concomitant]
     Active Substance: HYDROCORTISONE SODIUM SUCCINATE
     Route: 048
  241. HYDROCORTISONE SODIUM SUCCINATE [Concomitant]
     Active Substance: HYDROCORTISONE SODIUM SUCCINATE
  242. HYDROCORTISONE SODIUM SUCCINATE [Concomitant]
     Active Substance: HYDROCORTISONE SODIUM SUCCINATE
     Route: 061
  243. HYDROXYCHLOROQUINE [Concomitant]
     Active Substance: HYDROXYCHLOROQUINE
     Indication: Rheumatoid arthritis
  244. HYDROXYCHLOROQUINE [Concomitant]
     Active Substance: HYDROXYCHLOROQUINE
     Route: 048
  245. HYDROXYCHLOROQUINE [Concomitant]
     Active Substance: HYDROXYCHLOROQUINE
  246. HYDROXYCHLOROQUINE [Concomitant]
     Active Substance: HYDROXYCHLOROQUINE
  247. HYDROXYCHLOROQUINE [Concomitant]
     Active Substance: HYDROXYCHLOROQUINE
  248. HYDROXYCHLOROQUINE [Concomitant]
     Active Substance: HYDROXYCHLOROQUINE
  249. HYDROXYCHLOROQUINE [Concomitant]
     Active Substance: HYDROXYCHLOROQUINE
  250. HYDROXYCHLOROQUINE [Concomitant]
     Active Substance: HYDROXYCHLOROQUINE
  251. HYDROXYCHLOROQUINE [Concomitant]
     Active Substance: HYDROXYCHLOROQUINE
  252. HYDROXYCHLOROQUINE [Concomitant]
     Active Substance: HYDROXYCHLOROQUINE
  253. HYDROXYCHLOROQUINE [Concomitant]
     Active Substance: HYDROXYCHLOROQUINE
     Route: 058
  254. HYDROXYCHLOROQUINE [Concomitant]
     Active Substance: HYDROXYCHLOROQUINE
     Route: 048
  255. HYDROXYCHLOROQUINE [Concomitant]
     Active Substance: HYDROXYCHLOROQUINE
  256. HYDROXYCHLOROQUINE [Concomitant]
     Active Substance: HYDROXYCHLOROQUINE
  257. HYDROXYCHLOROQUINE SULFATE [Concomitant]
     Active Substance: HYDROXYCHLOROQUINE SULFATE
     Indication: Rheumatoid arthritis
     Route: 048
  258. HYDROXYCHLOROQUINE SULFATE [Concomitant]
     Active Substance: HYDROXYCHLOROQUINE SULFATE
  259. HYDROXYCHLOROQUINE SULFATE [Concomitant]
     Active Substance: HYDROXYCHLOROQUINE SULFATE
     Route: 048
  260. HYDROXYCHLOROQUINE SULFATE [Concomitant]
     Active Substance: HYDROXYCHLOROQUINE SULFATE
     Route: 048
  261. HYDROXYCHLOROQUINE SULFATE [Concomitant]
     Active Substance: HYDROXYCHLOROQUINE SULFATE
  262. HYDROXYCHLOROQUINE SULFATE [Concomitant]
     Active Substance: HYDROXYCHLOROQUINE SULFATE
     Route: 048
  263. HYDROXYCHLOROQUINE SULFATE [Concomitant]
     Active Substance: HYDROXYCHLOROQUINE SULFATE
  264. HYDROXYCHLOROQUINE SULFATE [Concomitant]
     Active Substance: HYDROXYCHLOROQUINE SULFATE
     Route: 048
  265. INFLIXIMAB [Concomitant]
     Active Substance: INFLIXIMAB
     Indication: Rheumatoid arthritis
  266. INFLIXIMAB [Concomitant]
     Active Substance: INFLIXIMAB
     Route: 042
  267. INFLIXIMAB [Concomitant]
     Active Substance: INFLIXIMAB
  268. INFLIXIMAB [Concomitant]
     Active Substance: INFLIXIMAB
     Route: 042
  269. INFLIXIMAB [Concomitant]
     Active Substance: INFLIXIMAB
     Route: 042
  270. ISOPROPYL ALCOHOL [Concomitant]
     Active Substance: ISOPROPYL ALCOHOL
     Indication: Product used for unknown indication
     Dosage: LIQUID
     Route: 061
  271. LEFLUNOMIDE [Concomitant]
     Active Substance: LEFLUNOMIDE
     Indication: Rheumatoid arthritis
     Route: 048
  272. LEFLUNOMIDE [Concomitant]
     Active Substance: LEFLUNOMIDE
     Route: 048
  273. LEFLUNOMIDE [Concomitant]
     Active Substance: LEFLUNOMIDE
     Route: 048
  274. LYRICA [Concomitant]
     Active Substance: PREGABALIN
     Indication: Product used for unknown indication
  275. METHOTREXATE [Concomitant]
     Active Substance: METHOTREXATE
     Indication: Rheumatoid arthritis
     Route: 058
  276. METHOTREXATE [Concomitant]
     Active Substance: METHOTREXATE
     Route: 013
  277. METHOTREXATE [Concomitant]
     Active Substance: METHOTREXATE
  278. METHOTREXATE [Concomitant]
     Active Substance: METHOTREXATE
     Route: 048
  279. METHOTREXATE [Concomitant]
     Active Substance: METHOTREXATE
     Route: 048
  280. METHOTREXATE [Concomitant]
     Active Substance: METHOTREXATE
     Route: 048
  281. METHOTREXATE [Concomitant]
     Active Substance: METHOTREXATE
     Route: 048
  282. METHOTREXATE [Concomitant]
     Active Substance: METHOTREXATE
     Route: 048
  283. METHOTREXATE [Concomitant]
     Active Substance: METHOTREXATE
     Route: 048
  284. METHOTREXATE [Concomitant]
     Active Substance: METHOTREXATE
     Route: 048
  285. METHOTREXATE [Concomitant]
     Active Substance: METHOTREXATE
     Route: 048
  286. METHOTREXATE [Concomitant]
     Active Substance: METHOTREXATE
     Route: 048
  287. METHOTREXATE [Concomitant]
     Active Substance: METHOTREXATE
     Route: 048
  288. METHOTREXATE [Concomitant]
     Active Substance: METHOTREXATE
     Route: 048
  289. METHOTREXATE [Concomitant]
     Active Substance: METHOTREXATE
     Route: 048
  290. METHOTREXATE [Concomitant]
     Active Substance: METHOTREXATE
     Route: 048
  291. METHOTREXATE [Concomitant]
     Active Substance: METHOTREXATE
     Route: 048
  292. METHOTREXATE [Concomitant]
     Active Substance: METHOTREXATE
     Route: 048
  293. METHOTREXATE [Concomitant]
     Active Substance: METHOTREXATE
     Route: 048
  294. METHOTREXATE [Concomitant]
     Active Substance: METHOTREXATE
  295. MYCOPHENOLATE MOFETIL [Concomitant]
     Active Substance: MYCOPHENOLATE MOFETIL
     Indication: Product used for unknown indication
  296. NAPROXEN SODIUM [Concomitant]
     Active Substance: NAPROXEN SODIUM
     Indication: Rheumatoid arthritis
  297. NAPROXEN SODIUM [Concomitant]
     Active Substance: NAPROXEN SODIUM
  298. ALFACALCIDOL [Concomitant]
     Active Substance: ALFACALCIDOL
     Indication: Product used for unknown indication
  299. PERIOGARD [Concomitant]
     Active Substance: CHLORHEXIDINE GLUCONATE
     Indication: Product used for unknown indication
     Route: 048
  300. PERIOGARD [Concomitant]
     Active Substance: CHLORHEXIDINE GLUCONATE
     Route: 002
  301. PERIOGARD [Concomitant]
     Active Substance: CHLORHEXIDINE GLUCONATE
  302. PERIOGARD [Concomitant]
     Active Substance: CHLORHEXIDINE GLUCONATE
  303. PHTHALYLSULFATHIAZOLE [Concomitant]
     Active Substance: PHTHALYLSULFATHIAZOLE
     Indication: Rheumatoid arthritis
     Route: 048
  304. PHTHALYLSULFATHIAZOLE [Concomitant]
     Active Substance: PHTHALYLSULFATHIAZOLE
  305. PHTHALYLSULFATHIAZOLE [Concomitant]
     Active Substance: PHTHALYLSULFATHIAZOLE
  306. PHTHALYLSULFATHIAZOLE [Concomitant]
     Active Substance: PHTHALYLSULFATHIAZOLE
     Route: 042
  307. PHTHALYLSULFATHIAZOLE [Concomitant]
     Active Substance: PHTHALYLSULFATHIAZOLE
     Route: 048
  308. PHTHALYLSULFATHIAZOLE [Concomitant]
     Active Substance: PHTHALYLSULFATHIAZOLE
  309. PHTHALYLSULFATHIAZOLE [Concomitant]
     Active Substance: PHTHALYLSULFATHIAZOLE
     Route: 048
  310. PHTHALYLSULFATHIAZOLE [Concomitant]
     Active Substance: PHTHALYLSULFATHIAZOLE
     Route: 048
  311. PHTHALYLSULFATHIAZOLE [Concomitant]
     Active Substance: PHTHALYLSULFATHIAZOLE
     Route: 048
  312. PHTHALYLSULFATHIAZOLE [Concomitant]
     Active Substance: PHTHALYLSULFATHIAZOLE
     Route: 048
  313. PHTHALYLSULFATHIAZOLE [Concomitant]
     Active Substance: PHTHALYLSULFATHIAZOLE
     Route: 048
  314. PHTHALYLSULFATHIAZOLE [Concomitant]
     Active Substance: PHTHALYLSULFATHIAZOLE
     Route: 058
  315. PHTHALYLSULFATHIAZOLE [Concomitant]
     Active Substance: PHTHALYLSULFATHIAZOLE
     Route: 048
  316. PHTHALYLSULFATHIAZOLE [Concomitant]
     Active Substance: PHTHALYLSULFATHIAZOLE
     Route: 016
  317. PREDNISOLONE [Concomitant]
     Active Substance: PREDNISOLONE
     Indication: Product used for unknown indication
  318. PREDNISOLONE [Concomitant]
     Active Substance: PREDNISOLONE
  319. PREDNISOLONE [Concomitant]
     Active Substance: PREDNISOLONE
     Route: 048
  320. PREDNISOLONE [Concomitant]
     Active Substance: PREDNISOLONE
     Route: 048
  321. PREDNISONE [Concomitant]
     Active Substance: PREDNISONE
     Indication: Rheumatoid arthritis
     Route: 048
  322. PREDNISONE [Concomitant]
     Active Substance: PREDNISONE
     Indication: Psoriatic arthropathy
  323. PREDNISONE [Concomitant]
     Active Substance: PREDNISONE
     Indication: Condition aggravated
     Route: 042
  324. PREDNISONE [Concomitant]
     Active Substance: PREDNISONE
  325. PREDNISONE [Concomitant]
     Active Substance: PREDNISONE
     Route: 048
  326. PREDNISONE [Concomitant]
     Active Substance: PREDNISONE
     Route: 048
  327. PREDNISONE [Concomitant]
     Active Substance: PREDNISONE
     Route: 048
  328. PREDNISONE [Concomitant]
     Active Substance: PREDNISONE
     Route: 048
  329. PREDNISONE [Concomitant]
     Active Substance: PREDNISONE
  330. PREDNISONE [Concomitant]
     Active Substance: PREDNISONE
     Route: 048
  331. PREDNISONE [Concomitant]
     Active Substance: PREDNISONE
  332. PREGABALIN [Concomitant]
     Active Substance: PREGABALIN
     Indication: Product used for unknown indication
  333. PSEUDOEPHEDRINE HYDROCHLORIDE [Concomitant]
     Active Substance: PSEUDOEPHEDRINE HYDROCHLORIDE
     Indication: Product used for unknown indication
  334. PSEUDOEPHEDRINE HYDROCHLORIDE [Concomitant]
     Active Substance: PSEUDOEPHEDRINE HYDROCHLORIDE
  335. PSEUDOEPHEDRINE HYDROCHLORIDE [Concomitant]
     Active Substance: PSEUDOEPHEDRINE HYDROCHLORIDE
  336. PSEUDOEPHEDRINE HYDROCHLORIDE [Concomitant]
     Active Substance: PSEUDOEPHEDRINE HYDROCHLORIDE
  337. CETIRIZINE HYDROCHLORIDE\PSEUDOEPHEDRINE HYDROCHLORIDE [Concomitant]
     Active Substance: CETIRIZINE HYDROCHLORIDE\PSEUDOEPHEDRINE HYDROCHLORIDE
     Indication: Rheumatoid arthritis
  338. CETIRIZINE HYDROCHLORIDE\PSEUDOEPHEDRINE HYDROCHLORIDE [Concomitant]
     Active Substance: CETIRIZINE HYDROCHLORIDE\PSEUDOEPHEDRINE HYDROCHLORIDE
     Route: 048
  339. CETIRIZINE HYDROCHLORIDE\PSEUDOEPHEDRINE HYDROCHLORIDE [Concomitant]
     Active Substance: CETIRIZINE HYDROCHLORIDE\PSEUDOEPHEDRINE HYDROCHLORIDE
  340. CETIRIZINE HYDROCHLORIDE\PSEUDOEPHEDRINE HYDROCHLORIDE [Concomitant]
     Active Substance: CETIRIZINE HYDROCHLORIDE\PSEUDOEPHEDRINE HYDROCHLORIDE
  341. CETIRIZINE HYDROCHLORIDE\PSEUDOEPHEDRINE HYDROCHLORIDE [Concomitant]
     Active Substance: CETIRIZINE HYDROCHLORIDE\PSEUDOEPHEDRINE HYDROCHLORIDE
     Dosage: EXTEND RELEASE
  342. REMICADE [Concomitant]
     Active Substance: INFLIXIMAB
     Indication: Rheumatoid arthritis
  343. REMICADE [Concomitant]
     Active Substance: INFLIXIMAB
     Route: 042
  344. REMICADE [Concomitant]
     Active Substance: INFLIXIMAB
     Dosage: POWDER FOR SOLUTION FOR INJECTION
     Route: 042
  345. RITUXIMAB [Concomitant]
     Active Substance: RITUXIMAB
     Indication: Rheumatoid arthritis
     Route: 058
  346. RITUXIMAB [Concomitant]
     Active Substance: RITUXIMAB
     Route: 042
  347. RITUXIMAB [Concomitant]
     Active Substance: RITUXIMAB
  348. RITUXIMAB [Concomitant]
     Active Substance: RITUXIMAB
     Route: 016
  349. RITUXIMAB [Concomitant]
     Active Substance: RITUXIMAB
     Route: 058
  350. RITUXIMAB [Concomitant]
     Active Substance: RITUXIMAB
     Route: 016
  351. DIETARY SUPPLEMENT\HERBALS [Concomitant]
     Active Substance: DIETARY SUPPLEMENT\HERBALS
     Indication: Product used for unknown indication
     Route: 048
  352. SIMPONI [Concomitant]
     Active Substance: GOLIMUMAB
     Indication: Rheumatoid arthritis
     Route: 058
  353. SIMPONI [Concomitant]
     Active Substance: GOLIMUMAB
     Route: 052
  354. SIMPONI [Concomitant]
     Active Substance: GOLIMUMAB
  355. SIMPONI [Concomitant]
     Active Substance: GOLIMUMAB
     Route: 042
  356. SIMPONI [Concomitant]
     Active Substance: GOLIMUMAB
     Route: 058
  357. STELARA [Concomitant]
     Active Substance: USTEKINUMAB
     Indication: Rheumatoid arthritis
     Route: 042
  358. STELARA [Concomitant]
     Active Substance: USTEKINUMAB
     Route: 058
  359. STELARA [Concomitant]
     Active Substance: USTEKINUMAB
     Route: 042
  360. STELARA [Concomitant]
     Active Substance: USTEKINUMAB
     Route: 058
  361. SULFAMETHOXAZOLE [Concomitant]
     Active Substance: SULFAMETHOXAZOLE
     Indication: Rheumatoid arthritis
  362. SULFAMETHOXAZOLE\TRIMETHOPRIM [Concomitant]
     Active Substance: SULFAMETHOXAZOLE\TRIMETHOPRIM
     Indication: Product used for unknown indication
  363. SULFAMETHOXAZOLE\TRIMETHOPRIM [Concomitant]
     Active Substance: SULFAMETHOXAZOLE\TRIMETHOPRIM
  364. SULFAMETHOXAZOLE\TRIMETHOPRIM [Concomitant]
     Active Substance: SULFAMETHOXAZOLE\TRIMETHOPRIM
  365. SULFAMETHOXAZOLE\TRIMETHOPRIM [Concomitant]
     Active Substance: SULFAMETHOXAZOLE\TRIMETHOPRIM
     Route: 067
  366. SULFASALAZINE [Concomitant]
     Active Substance: SULFASALAZINE
     Indication: Product used for unknown indication
     Route: 048
  367. SULFASALAZINE [Concomitant]
     Active Substance: SULFASALAZINE
     Route: 058
  368. SULFASALAZINE [Concomitant]
     Active Substance: SULFASALAZINE
  369. SULFASALAZINE [Concomitant]
     Active Substance: SULFASALAZINE
     Route: 048
  370. SULFASALAZINE [Concomitant]
     Active Substance: SULFASALAZINE
     Route: 048
  371. SULFASALAZINE [Concomitant]
     Active Substance: SULFASALAZINE
  372. SULFASALAZINE [Concomitant]
     Active Substance: SULFASALAZINE
     Route: 048
  373. SULFASALAZINE [Concomitant]
     Active Substance: SULFASALAZINE
     Route: 058
  374. SULFASALAZINE [Concomitant]
     Active Substance: SULFASALAZINE
     Route: 058
  375. SULFASALAZINE [Concomitant]
     Active Substance: SULFASALAZINE
     Route: 048
  376. SULFASALAZINE [Concomitant]
     Active Substance: SULFASALAZINE
     Route: 048
  377. SULFASALAZINE [Concomitant]
     Active Substance: SULFASALAZINE
     Route: 048
  378. SULFASALAZINE [Concomitant]
     Active Substance: SULFASALAZINE
     Route: 048
  379. SULFASALAZINE [Concomitant]
     Active Substance: SULFASALAZINE
     Route: 048
  380. SULFASALAZINE [Concomitant]
     Active Substance: SULFASALAZINE
     Route: 048
  381. SULFASALAZINE [Concomitant]
     Active Substance: SULFASALAZINE
     Route: 048
  382. SULFASALAZINE [Concomitant]
     Active Substance: SULFASALAZINE
     Route: 048
  383. SULFASALAZINE [Concomitant]
     Active Substance: SULFASALAZINE
  384. SULFASALAZINE [Concomitant]
     Active Substance: SULFASALAZINE
     Route: 048
  385. SULFASALAZINE [Concomitant]
     Active Substance: SULFASALAZINE
     Route: 048
  386. SULFASALAZINE [Concomitant]
     Active Substance: SULFASALAZINE
  387. SULFASALAZINE [Concomitant]
     Active Substance: SULFASALAZINE
     Route: 048
  388. SULFASALAZINE [Concomitant]
     Active Substance: SULFASALAZINE
  389. SULFASALAZINE [Concomitant]
     Active Substance: SULFASALAZINE
     Route: 048
  390. SULFASALAZINE [Concomitant]
     Active Substance: SULFASALAZINE
  391. SULFASALAZINE [Concomitant]
     Active Substance: SULFASALAZINE
     Route: 048
  392. SULFASALAZINE [Concomitant]
     Active Substance: SULFASALAZINE
     Route: 048
  393. SULFASALAZINE [Concomitant]
     Active Substance: SULFASALAZINE
     Route: 048
  394. SULFASALAZINE [Concomitant]
     Active Substance: SULFASALAZINE
     Route: 048
  395. SULFASALAZINE [Concomitant]
     Active Substance: SULFASALAZINE
     Route: 048
  396. SULFASALAZINE [Concomitant]
     Active Substance: SULFASALAZINE
  397. SULFASALAZINE [Concomitant]
     Active Substance: SULFASALAZINE
     Route: 048
  398. TOFACITINIB CITRATE [Concomitant]
     Active Substance: TOFACITINIB CITRATE
     Indication: Rheumatoid arthritis
  399. TOFACITINIB CITRATE [Concomitant]
     Active Substance: TOFACITINIB CITRATE
     Indication: Psoriatic arthropathy
     Route: 048
  400. TOFACITINIB CITRATE [Concomitant]
     Active Substance: TOFACITINIB CITRATE
     Route: 048
  401. TOFACITINIB CITRATE [Concomitant]
     Active Substance: TOFACITINIB CITRATE
  402. TOFACITINIB CITRATE [Concomitant]
     Active Substance: TOFACITINIB CITRATE
     Route: 058
  403. TRIAMCINOLONE ACETONIDE [Concomitant]
     Active Substance: TRIAMCINOLONE ACETONIDE
     Indication: Rheumatoid arthritis
     Route: 014
  404. VITAMIN C [Concomitant]
     Active Substance: ASCORBIC ACID
     Indication: Product used for unknown indication
  405. PREDNISONE [Concomitant]
     Active Substance: PREDNISONE
     Indication: Rheumatoid arthritis
     Route: 048
  406. XELJANZ [Concomitant]
     Active Substance: TOFACITINIB CITRATE
     Indication: Rheumatoid arthritis
  407. XELJANZ [Concomitant]
     Active Substance: TOFACITINIB CITRATE
  408. XELJANZ [Concomitant]
     Active Substance: TOFACITINIB CITRATE
     Route: 048
  409. XELJANZ [Concomitant]
     Active Substance: TOFACITINIB CITRATE
  410. XELJANZ [Concomitant]
     Active Substance: TOFACITINIB CITRATE
  411. XELJANZ [Concomitant]
     Active Substance: TOFACITINIB CITRATE
     Route: 048
  412. XELJANZ [Concomitant]
     Active Substance: TOFACITINIB CITRATE
  413. XELJANZ [Concomitant]
     Active Substance: TOFACITINIB CITRATE
  414. XELJANZ [Concomitant]
     Active Substance: TOFACITINIB CITRATE
  415. XELJANZ [Concomitant]
     Active Substance: TOFACITINIB CITRATE

REACTIONS (13)
  - Fatigue [Unknown]
  - Fibromyalgia [Unknown]
  - Folliculitis [Unknown]
  - Gait inability [Unknown]
  - Gastrointestinal disorder [Unknown]
  - Glossodynia [Unknown]
  - Hand deformity [Unknown]
  - Headache [Unknown]
  - Helicobacter infection [Unknown]
  - Hypersensitivity [Unknown]
  - Adverse event [Unknown]
  - Hospitalisation [Unknown]
  - Off label use [Unknown]
